FAERS Safety Report 7458523-7 (Version None)
Quarter: 2011Q2

REPORT INFORMATION
  Report Type: 
  Country: None (occurrence: None)
  Receive Date: 20110504
  Receipt Date: 20110421
  Transmission Date: 20111010
  Serious: Yes (Hospitalization)
  Sender: FDA-Public Use
  Company Number: PHHY2011TR35398

PATIENT
  Age: 15 Year
  Sex: Female

DRUGS (1)
  1. IMIPRAMINE [Suspect]
     Dosage: UNK

REACTIONS (8)
  - TOXICITY TO VARIOUS AGENTS [None]
  - ELECTROCARDIOGRAM QT PROLONGED [None]
  - RENAL FAILURE ACUTE [None]
  - HYPOTENSION [None]
  - QRS AXIS ABNORMAL [None]
  - ELECTROCARDIOGRAM QRS COMPLEX PROLONGED [None]
  - NODAL RHYTHM [None]
  - ELECTROCARDIOGRAM QRS COMPLEX ABNORMAL [None]
